FAERS Safety Report 23663000 (Version 1)
Quarter: 2024Q1

REPORT INFORMATION
  Report Type: Spontaneous
  Country: US (occurrence: None)
  Receive Date: 20240321
  Receipt Date: 20240321
  Transmission Date: 20240409
  Serious: Yes (unspecified)
  Sender: FDA-Public Use
  Company Number: None

PATIENT
  Age: 19 Year
  Sex: Female
  Weight: 40.5 kg

DRUGS (1)
  1. VYJUVEK [Suspect]
     Active Substance: BEREMAGENE GEPERPAVEC-SVDT
     Indication: Epidermolysis bullosa
     Dosage: 1.6 ML WEEKLY TOPICAL?
     Route: 061
     Dates: start: 20231208, end: 20240207

REACTIONS (4)
  - Blister [None]
  - Pruritus [None]
  - Pain [None]
  - Therapy cessation [None]
